FAERS Safety Report 11653876 (Version 3)
Quarter: 2015Q4

REPORT INFORMATION
  Report Type: Spontaneous
  Country: LY (occurrence: LY)
  Receive Date: 20151022
  Receipt Date: 20151124
  Transmission Date: 20160304
  Serious: Yes (Death, Hospitalization)
  Sender: FDA-Public Use
  Company Number: LY-ABBVIE-15P-097-1484292-00

PATIENT
  Age: 8 Day
  Sex: Male
  Weight: 1.3 kg

DRUGS (7)
  1. DEXAMETHASONE. [Concomitant]
     Active Substance: DEXAMETHASONE
     Indication: MECHANICAL VENTILATION
     Dosage: 1.3CC LOADING DOSE
     Route: 042
     Dates: start: 20151002
  2. AMINOPHYLLINE. [Concomitant]
     Active Substance: AMINOPHYLLINE
     Indication: APNOEA NEONATAL
     Dosage: LOADING DOSE
     Route: 042
     Dates: start: 20150927
  3. DEXAMETHASONE. [Concomitant]
     Active Substance: DEXAMETHASONE
     Route: 042
     Dates: end: 20151005
  4. AMINOPHYLLINE. [Concomitant]
     Active Substance: AMINOPHYLLINE
     Dosage: MAINTENANCE
     Route: 042
     Dates: end: 20151005
  5. SURVANTA [Suspect]
     Active Substance: BERACTANT
     Indication: NEONATAL RESPIRATORY DISTRESS SYNDROME
     Dosage: INTRATRACHEAL
     Route: 065
     Dates: start: 20150928, end: 20150928
  6. CLAFORAN [Concomitant]
     Active Substance: CEFOTAXIME SODIUM
     Indication: ANTIBIOTIC PROPHYLAXIS
     Route: 042
     Dates: start: 20151002, end: 20151005
  7. AMPICILLINE [Concomitant]
     Indication: ANTIBIOTIC PROPHYLAXIS
     Route: 042
     Dates: start: 20150927, end: 20151005

REACTIONS (1)
  - Pulmonary haemorrhage [Fatal]

NARRATIVE: CASE EVENT DATE: 20151005
